FAERS Safety Report 8202812-5 (Version None)
Quarter: 2012Q1

REPORT INFORMATION
  Report Type: 
  Country: None (occurrence: None)
  Receive Date: 20120312
  Receipt Date: 20120312
  Transmission Date: 20120608
  Serious: No
  Sender: FDA-Public Use
  Company Number: None

PATIENT
  Sex: Female
  Weight: 74.842 kg

DRUGS (3)
  1. BESIVANCE [Concomitant]
     Dosage: ONE DROP
     Route: 047
     Dates: start: 20120222, end: 20120222
  2. BESIVANCE [Suspect]
     Indication: PHOTOREFRACTIVE KERATECTOMY
     Dosage: ONE DROP
     Route: 047
     Dates: start: 20120222, end: 20120222
  3. BESIVANCE [Suspect]
     Indication: INFECTION PROPHYLAXIS
     Dosage: ONE DROP
     Route: 047
     Dates: start: 20120222, end: 20120222

REACTIONS (1)
  - IMPAIRED HEALING [None]
